FAERS Safety Report 12908140 (Version 68)
Quarter: 2021Q3

REPORT INFORMATION
  Report Type: Report from Study
  Country: CA (occurrence: CA)
  Receive Date: 20161103
  Receipt Date: 20210904
  Transmission Date: 20211014
  Serious: Yes (Death, Hospitalization, Other)
  Sender: FDA-Public Use
  Company Number: PHHY2012CA091745

PATIENT
  Age: 79 Year
  Sex: Female

DRUGS (16)
  1. SANDOSTATIN LAR DEPOT [Suspect]
     Active Substance: OCTREOTIDE ACETATE
     Dosage: UNK
     Route: 065
     Dates: start: 202107
  2. ZANTAC [Concomitant]
     Active Substance: RANITIDINE HYDROCHLORIDE
     Indication: PRODUCT USED FOR UNKNOWN INDICATION
     Dosage: UNK, PRN
     Route: 065
  3. SANDOSTATIN LAR DEPOT [Suspect]
     Active Substance: OCTREOTIDE ACETATE
     Indication: METASTATIC CARCINOID TUMOUR
     Dosage: 30 MG, QMO (EVERY 4 WEEKS)
     Route: 030
     Dates: start: 20111228, end: 2016
  4. SANDOSTATIN [Suspect]
     Active Substance: OCTREOTIDE ACETATE
  5. AVALIDE [Concomitant]
     Active Substance: HYDROCHLOROTHIAZIDE\IRBESARTAN
     Indication: PRODUCT USED FOR UNKNOWN INDICATION
     Dosage: UNK
     Route: 065
  6. SANDOSTATIN [Suspect]
     Active Substance: OCTREOTIDE ACETATE
     Indication: METASTATIC CARCINOID TUMOUR
     Dosage: UNK, TID
     Route: 058
     Dates: start: 2011, end: 2011
  7. SANDOSTATIN [Suspect]
     Active Substance: OCTREOTIDE ACETATE
  8. METOPROLOL. [Concomitant]
     Active Substance: METOPROLOL
     Indication: GOUT
     Dosage: UNK
     Route: 048
  9. COLACE [Concomitant]
     Active Substance: DOCUSATE SODIUM
     Indication: PRODUCT USED FOR UNKNOWN INDICATION
     Dosage: UNK, PRN
     Route: 065
  10. TIAZAC [Concomitant]
     Active Substance: DILTIAZEM HYDROCHLORIDE
     Indication: PRODUCT USED FOR UNKNOWN INDICATION
     Dosage: UNK
     Route: 065
  11. ALPRENOLOL//ALPRENOLOL HYDROCHLORIDE [Concomitant]
     Indication: PRODUCT USED FOR UNKNOWN INDICATION
     Dosage: 100 MG, UNK
     Route: 065
  12. TYLENOL [Concomitant]
     Active Substance: ACETAMINOPHEN
     Indication: PRODUCT USED FOR UNKNOWN INDICATION
     Dosage: 3 UNK
     Route: 065
  13. CEFIXIME. [Concomitant]
     Active Substance: CEFIXIME
     Indication: PRODUCT USED FOR UNKNOWN INDICATION
     Dosage: 0.5 DF, QD (1/2 TABLET DAILY)
     Route: 065
     Dates: start: 20181214, end: 20181222
  14. SANDOSTATIN LAR DEPOT [Suspect]
     Active Substance: OCTREOTIDE ACETATE
     Dosage: 30 MG, QMO (EVERY 4 WEEKS)
     Route: 030
     Dates: start: 20160413
  15. ALLOPURINOL. [Concomitant]
     Active Substance: ALLOPURINOL
     Indication: GOUT
     Dosage: 100 MG, UNK
     Route: 065
  16. NITRO [Concomitant]
     Active Substance: NITROGLYCERIN
     Indication: BLOOD PRESSURE INCREASED
     Dosage: UNK
     Route: 065

REACTIONS (32)
  - Nephrolithiasis [Not Recovered/Not Resolved]
  - Stress [Unknown]
  - Blood pressure decreased [Unknown]
  - Hot flush [Unknown]
  - Application site hypersensitivity [Unknown]
  - Blood pressure diastolic decreased [Unknown]
  - Fatigue [Unknown]
  - Product administration error [Unknown]
  - Death [Fatal]
  - Pain [Not Recovered/Not Resolved]
  - Pyrexia [Unknown]
  - Renal failure [Unknown]
  - Back pain [Unknown]
  - Flushing [Unknown]
  - Pruritus [Unknown]
  - Diarrhoea [Unknown]
  - Malaise [Unknown]
  - Metastases to liver [Unknown]
  - Nephrolithiasis [Recovered/Resolved]
  - Blood pressure systolic increased [Unknown]
  - Burning sensation [Unknown]
  - Chills [Unknown]
  - Insomnia [Unknown]
  - Rash [Unknown]
  - Needle issue [Unknown]
  - Wrong technique in product usage process [Unknown]
  - Kidney infection [Unknown]
  - Renal pain [Not Recovered/Not Resolved]
  - Alopecia [Unknown]
  - Feeling abnormal [Unknown]
  - Infection [Unknown]
  - Injection site mass [Unknown]

NARRATIVE: CASE EVENT DATE: 20160510
